FAERS Safety Report 7496354-2 (Version None)
Quarter: 2011Q2

REPORT INFORMATION
  Report Type: 
  Country: None (occurrence: None)
  Receive Date: 20110520
  Receipt Date: 20110520
  Transmission Date: 20111010
  Serious: Yes (Hospitalization)
  Sender: FDA-Public Use
  Company Number: None

PATIENT
  Age: 63 Year
  Sex: Female

DRUGS (1)
  1. PROCRIT [Suspect]
     Indication: NEPHROGENIC ANAEMIA
     Dosage: PROCRIT 20,000 UNITS UNDER THE SKIN EVERY 2 WEEKS
     Route: 058
     Dates: start: 20101207, end: 20110512

REACTIONS (1)
  - HAEMORRHAGE [None]
